FAERS Safety Report 4564475-X (Version None)
Quarter: 2005Q1

REPORT INFORMATION
  Report Type: 
  Country: None (occurrence: None)
  Receive Date: 20050126
  Receipt Date: 20050110
  Transmission Date: 20050727
  Serious: No
  Sender: FDA-Public Use
  Company Number: A01200500212

PATIENT
  Age: 73 Year
  Sex: Female

DRUGS (3)
  1. PLAVIX [Suspect]
     Indication: PERIPHERAL OCCLUSIVE DISEASE
     Dosage: 75 MG QD ORAL
     Route: 048
     Dates: end: 20041220
  2. PRAVASTATIN [Concomitant]
  3. PRAXILENE (NAFTIDROFURYL OXALATE) [Concomitant]

REACTIONS (4)
  - ALVEOLITIS [None]
  - ATELECTASIS [None]
  - HAEMOPTYSIS [None]
  - PULMONARY THROMBOSIS [None]
